FAERS Safety Report 14019395 (Version 2)
Quarter: 2017Q4

REPORT INFORMATION
  Report Type: Spontaneous
  Country: IT (occurrence: IT)
  Receive Date: 20170928
  Receipt Date: 20171010
  Transmission Date: 20180321
  Serious: Yes (Other)
  Sender: FDA-Public Use
  Company Number: IT-ALLERGAN-1754708US

PATIENT
  Age: 79 Year
  Sex: Male
  Weight: 72 kg

DRUGS (5)
  1. AIRTAL [Concomitant]
     Active Substance: ACECLOFENAC
     Dosage: UNK, PRN
  2. ISKIDROP [Concomitant]
  3. SIMVASTATINE [Concomitant]
     Active Substance: SIMVASTATIN
  4. LIMPIDEX [Concomitant]
     Active Substance: LANSOPRAZOLE
     Dosage: 15 MG, UNK
  5. MEMANTINE HCL - BP [Suspect]
     Active Substance: MEMANTINE
     Indication: DEMENTIA
     Dosage: UNK
     Route: 048
     Dates: start: 20170820, end: 20170912

REACTIONS (3)
  - Hot flush [Not Recovered/Not Resolved]
  - Vertigo [Not Recovered/Not Resolved]
  - Headache [Not Recovered/Not Resolved]

NARRATIVE: CASE EVENT DATE: 20170820
